FAERS Safety Report 20173295 (Version 2)
Quarter: 2022Q1

REPORT INFORMATION
  Report Type: Report from Study
  Country: BR (occurrence: BR)
  Receive Date: 20211211
  Receipt Date: 20220225
  Transmission Date: 20220423
  Serious: Yes (Other)
  Sender: FDA-Public Use
  Company Number: BR-NOVARTISPH-NVSC2021BR280414

PATIENT
  Sex: Female

DRUGS (6)
  1. DIOVAN [Suspect]
     Active Substance: VALSARTAN
     Indication: Product used for unknown indication
     Dosage: DIOVAN 80(MORE THAN)
     Route: 065
  2. DIOVAN [Suspect]
     Active Substance: VALSARTAN
     Dosage: DIOVAN 160(MORE THAN)
     Route: 065
  3. DIOVAN [Suspect]
     Active Substance: VALSARTAN
     Dosage: DIOVAN 320(MORE THAN)
     Route: 065
     Dates: end: 202001
  4. ATENOLOL [Suspect]
     Active Substance: ATENOLOL
     Indication: Product used for unknown indication
     Dosage: UNK
     Route: 065
  5. AMLODIPINE BESYLATE [Suspect]
     Active Substance: AMLODIPINE BESYLATE
     Indication: Product used for unknown indication
     Dosage: 5 MG
     Route: 065
  6. ALPRAZOLAM [Concomitant]
     Active Substance: ALPRAZOLAM
     Indication: Product used for unknown indication
     Dosage: 2 MG, BID
     Route: 065

REACTIONS (11)
  - Cataract [Unknown]
  - Tachycardia [Unknown]
  - Memory impairment [Unknown]
  - Hunger [Unknown]
  - Depression [Unknown]
  - Malaise [Unknown]
  - Disorientation [Unknown]
  - Visual impairment [Unknown]
  - Sinusitis [Unknown]
  - Thyroiditis [Unknown]
  - Drug ineffective [Unknown]

NARRATIVE: CASE EVENT DATE: 20200101
